FAERS Safety Report 14272577 (Version 2)
Quarter: 2018Q2

REPORT INFORMATION
  Report Type: Spontaneous
  Country: US (occurrence: US)
  Receive Date: 20171211
  Receipt Date: 20180628
  Transmission Date: 20180711
  Serious: Yes (Other)
  Sender: FDA-Public Use
  Company Number: US-OTSUKA-2017_018519

PATIENT
  Sex: Female

DRUGS (5)
  1. ABILIFY [Suspect]
     Active Substance: ARIPIPRAZOLE
     Indication: IRRITABILITY
  2. ABILIFY [Suspect]
     Active Substance: ARIPIPRAZOLE
     Indication: ANXIETY
  3. ABILIFY [Suspect]
     Active Substance: ARIPIPRAZOLE
     Indication: BIPOLAR DISORDER
     Dosage: 15 MG, QD
     Route: 048
     Dates: start: 2007, end: 201403
  4. ABILIFY [Suspect]
     Active Substance: ARIPIPRAZOLE
     Indication: AGITATION
  5. ABILIFY [Suspect]
     Active Substance: ARIPIPRAZOLE
     Indication: MAJOR DEPRESSION

REACTIONS (10)
  - Injury [Unknown]
  - Compulsive hoarding [Recovered/Resolved]
  - Gambling disorder [Recovered/Resolved]
  - Eating disorder [Recovered/Resolved]
  - Compulsive shopping [Recovered/Resolved]
  - Brain injury [Unknown]
  - Bankruptcy [Unknown]
  - Divorced [Unknown]
  - Loss of employment [Unknown]
  - Economic problem [Unknown]
